FAERS Safety Report 8058383-X (Version None)
Quarter: 2012Q1

REPORT INFORMATION
  Report Type: 
  Country: None (occurrence: None)
  Receive Date: 20120120
  Receipt Date: 20120114
  Transmission Date: 20120608
  Serious: Yes (Other)
  Sender: FDA-Public Use
  Company Number: US-JNJFOC-20090702797

PATIENT
  Sex: Male
  Weight: 65.9 kg

DRUGS (47)
  1. GOLIMUMAB [Suspect]
     Route: 058
     Dates: start: 20060913
  2. GOLIMUMAB [Suspect]
     Route: 058
     Dates: start: 20061206
  3. GOLIMUMAB [Suspect]
     Route: 058
     Dates: start: 20060104
  4. GOLIMUMAB [Suspect]
     Route: 058
     Dates: start: 20080325
  5. GOLIMUMAB [Suspect]
     Route: 058
     Dates: start: 20090224
  6. GOLIMUMAB [Suspect]
     Route: 058
     Dates: start: 20060426
  7. GOLIMUMAB [Suspect]
     Route: 058
     Dates: start: 20060621
  8. GOLIMUMAB [Suspect]
     Route: 058
     Dates: start: 20070620
  9. GOLIMUMAB [Suspect]
     Route: 058
     Dates: start: 20080104
  10. GOLIMUMAB [Suspect]
     Route: 058
     Dates: start: 20080812
  11. SIMVASTATIN [Concomitant]
     Route: 048
     Dates: start: 20080701
  12. HYDROCHLOROTHIAZIDE W/VALSARTAN [Concomitant]
     Route: 048
     Dates: start: 20080812
  13. GOLIMUMAB [Suspect]
     Route: 058
     Dates: start: 20060719
  14. GOLIMUMAB [Suspect]
     Route: 058
     Dates: start: 20061108
  15. GOLIMUMAB [Suspect]
     Route: 058
     Dates: start: 20070228
  16. GOLIMUMAB [Suspect]
     Route: 058
     Dates: start: 20070328
  17. GOLIMUMAB [Suspect]
     Route: 058
     Dates: start: 20070816
  18. GOLIMUMAB [Suspect]
     Route: 058
     Dates: start: 20070911
  19. GOLIMUMAB [Suspect]
     Route: 058
     Dates: start: 20080204
  20. GOLIMUMAB [Suspect]
     Route: 058
     Dates: start: 20080715
  21. GOLIMUMAB [Suspect]
     Route: 058
     Dates: start: 20090421
  22. GOLIMUMAB [Suspect]
     Route: 058
     Dates: start: 20070130
  23. GOLIMUMAB [Suspect]
     Route: 058
     Dates: start: 20080304
  24. GOLIMUMAB [Suspect]
     Route: 058
     Dates: start: 20081231
  25. GOLIMUMAB [Suspect]
     Route: 058
     Dates: start: 20060331
  26. GOLIMUMAB [Suspect]
     Route: 058
     Dates: start: 20060201
  27. GOLIMUMAB [Suspect]
     Indication: PSORIATIC ARTHROPATHY
     Route: 058
     Dates: start: 20060524
  28. GOLIMUMAB [Suspect]
     Route: 058
     Dates: start: 20060822
  29. GOLIMUMAB [Suspect]
     Route: 058
     Dates: start: 20061011
  30. GOLIMUMAB [Suspect]
     Route: 058
     Dates: start: 20070718
  31. GOLIMUMAB [Suspect]
     Route: 058
     Dates: start: 20080617
  32. GOLIMUMAB [Suspect]
     Route: 058
     Dates: start: 20081203
  33. GOLIMUMAB [Suspect]
     Route: 058
     Dates: start: 20090127
  34. GOLIMUMAB [Suspect]
     Route: 058
     Dates: start: 20070425
  35. GOLIMUMAB [Suspect]
     Route: 058
     Dates: start: 20070523
  36. GOLIMUMAB [Suspect]
     Route: 058
     Dates: start: 20071106
  37. GOLIMUMAB [Suspect]
     Route: 058
     Dates: start: 20081105
  38. GOLIMUMAB [Suspect]
     Route: 058
     Dates: start: 20070109
  39. GOLIMUMAB [Suspect]
     Route: 058
     Dates: start: 20080520
  40. GOLIMUMAB [Suspect]
     Route: 058
     Dates: start: 20080909
  41. GOLIMUMAB [Suspect]
     Route: 058
     Dates: start: 20071009
  42. FLOMAX [Concomitant]
     Route: 048
     Dates: start: 20060624
  43. GOLIMUMAB [Suspect]
     Route: 058
     Dates: start: 20080422
  44. GOLIMUMAB [Suspect]
     Route: 058
     Dates: start: 20081007
  45. GOLIMUMAB [Suspect]
     Route: 058
     Dates: start: 20060301
  46. OMEPRAZOLE [Concomitant]
     Route: 048
     Dates: start: 20070101
  47. AMLODIPINE [Concomitant]
     Route: 048
     Dates: start: 20080812

REACTIONS (1)
  - BLADDER CANCER [None]
